FAERS Safety Report 10066681 (Version 1)
Quarter: 2014Q2

REPORT INFORMATION
  Report Type: Spontaneous
  Country: US (occurrence: US)
  Receive Date: 20140408
  Receipt Date: 20140408
  Transmission Date: 20141212
  Serious: Yes (Hospitalization)
  Sender: FDA-Public Use
  Company Number: US-B.I. PHARMACEUTICALS,INC./RIDGEFIELD-2014-BI-14834BP

PATIENT
  Age: 78 Year
  Sex: Male
  Weight: 113.63 kg

DRUGS (6)
  1. PRADAXA [Suspect]
     Indication: ATRIAL FIBRILLATION
     Dosage: 300 MG
     Route: 048
     Dates: start: 2012
  2. LISINOPRIL [Concomitant]
     Indication: HYPERTENSION
     Route: 065
  3. METOPROLOL [Concomitant]
     Indication: HYPERTENSION
     Route: 065
  4. CALCIUM [Concomitant]
     Indication: BONE DISORDER
     Route: 065
  5. DAILY VITAMIN [Concomitant]
     Route: 065
  6. PRESSURE VISION [Concomitant]
     Indication: SIGHT DISABILITY
     Route: 065

REACTIONS (2)
  - Cholecystitis infective [Recovered/Resolved]
  - Heart rate irregular [Recovered/Resolved]
